FAERS Safety Report 25293150 (Version 1)
Quarter: 2025Q2

REPORT INFORMATION
  Report Type: Spontaneous
  Country: US (occurrence: US)
  Receive Date: 20250510
  Receipt Date: 20250510
  Transmission Date: 20250716
  Serious: No
  Sender: SANOFI AVENTIS
  Company Number: US-SA-2025SA127602

PATIENT
  Age: 50 Year
  Sex: Female
  Weight: 90.72 kg

DRUGS (6)
  1. DUPIXENT [Suspect]
     Active Substance: DUPILUMAB
     Indication: Dermatitis atopic
     Route: 058
  2. VASELINE PURE [Concomitant]
     Active Substance: PETROLATUM
  3. AQUAPHOR [Concomitant]
     Active Substance: PETROLATUM
  4. CLOBETASOL [Concomitant]
     Active Substance: CLOBETASOL
  5. TACROLIMUS [Concomitant]
     Active Substance: TACROLIMUS
  6. ESCITALOPRAM OXALATE [Concomitant]
     Active Substance: ESCITALOPRAM OXALATE

REACTIONS (4)
  - Injection site urticaria [Recovering/Resolving]
  - Injection site pain [Unknown]
  - Injection site swelling [Recovering/Resolving]
  - Injection site erythema [Recovering/Resolving]

NARRATIVE: CASE EVENT DATE: 20250429
